FAERS Safety Report 5793548-9 (Version None)
Quarter: 2008Q2

REPORT INFORMATION
  Report Type: 
  Country: None (occurrence: None)
  Receive Date: 20080627
  Receipt Date: 20080623
  Transmission Date: 20081010
  Serious: Yes (Other)
  Sender: FDA-Public Use
  Company Number: US-JNJFOC-20080605729

PATIENT
  Sex: Female

DRUGS (3)
  1. IBUROFEN [Suspect]
     Indication: DRUG USE FOR UNKNOWN INDICATION
  2. PERCOCET [Concomitant]
  3. OXYCONTIN [Concomitant]

REACTIONS (2)
  - FIBROMYALGIA [None]
  - ULCER [None]
